FAERS Safety Report 5109349-0 (Version None)
Quarter: 2006Q3

REPORT INFORMATION
  Report Type: 
  Country: None (occurrence: None)
  Receive Date: 20060920
  Receipt Date: 20060626
  Transmission Date: 20061208
  Serious: Yes (Death, Life-Threatening, Other)
  Sender: FDA-Public Use
  Company Number: JP-BRISTOL-MYERS SQUIBB COMPANY-13426267

PATIENT
  Age: 60 Year
  Sex: Male

DRUGS (3)
  1. FUNGIZONE [Suspect]
     Indication: MENINGITIS CRYPTOCOCCAL
     Dosage: DOSAGE: 0.25 MG (1ST TIME) ON 26-MAY-2006.
     Route: 029
     Dates: start: 20060526, end: 20060616
  2. FUNGIZONE [Suspect]
     Indication: MENINGITIS CRYPTOCOCCAL
     Route: 042
     Dates: start: 20060524, end: 20060616
  3. VFEND [Concomitant]
     Indication: MENINGITIS CRYPTOCOCCAL
     Route: 042
     Dates: start: 20060418

REACTIONS (5)
  - DYSKINESIA [None]
  - LYMPHOMA [None]
  - MICTURITION DISORDER [None]
  - MONOPLEGIA [None]
  - MUSCULAR WEAKNESS [None]
